FAERS Safety Report 17730425 (Version 2)
Quarter: 2020Q3

REPORT INFORMATION
  Report Type: Spontaneous
  Country: US (occurrence: US)
  Receive Date: 20200430
  Receipt Date: 20200706
  Transmission Date: 20201102
  Serious: No
  Sender: FDA-Public Use
  Company Number: US-ELI_LILLY_AND_COMPANY-US202004009495

PATIENT
  Age: 50 Year
  Sex: Female

DRUGS (1)
  1. EMGALITY [Suspect]
     Active Substance: GALCANEZUMAB-GNLM
     Indication: MIGRAINE
     Dosage: 120 MG, UNKNOWN
     Route: 058
     Dates: start: 201907, end: 20200419

REACTIONS (23)
  - Ear pain [Unknown]
  - Anxiety [Unknown]
  - Pain [Unknown]
  - Tongue haemorrhage [Recovered/Resolved]
  - Oropharyngeal pain [Recovered/Resolved]
  - Vitamin B12 abnormal [Unknown]
  - Food allergy [Unknown]
  - Blood pressure increased [Unknown]
  - Tongue ulceration [Recovered/Resolved]
  - Tongue erythema [Recovered/Resolved]
  - Dyspnoea [Recovered/Resolved]
  - Mouth ulceration [Recovered/Resolved]
  - Hypophagia [Unknown]
  - Weight decreased [Unknown]
  - Pruritus [Unknown]
  - Tremor [Unknown]
  - Glossodynia [Recovered/Resolved]
  - Tongue discolouration [Recovered/Resolved]
  - Hand-foot-and-mouth disease [Unknown]
  - Stress [Unknown]
  - Swollen tongue [Unknown]
  - Lymphadenopathy [Unknown]
  - Urticaria [Recovering/Resolving]

NARRATIVE: CASE EVENT DATE: 201909
